FAERS Safety Report 8162769-2 (Version None)
Quarter: 2012Q1

REPORT INFORMATION
  Report Type: 
  Country: None (occurrence: None)
  Receive Date: 20120224
  Receipt Date: 20120221
  Transmission Date: 20120608
  Serious: Yes (Other)
  Sender: FDA-Public Use
  Company Number: US-MEDIMMUNE-MEDI-0013781

PATIENT
  Sex: Female
  Weight: 1.855 kg

DRUGS (4)
  1. ACTIGALL [Concomitant]
  2. IRON [Concomitant]
  3. SYNAGIS [Suspect]
     Dates: start: 20111021, end: 20111021
  4. POLY-VI-SOL [Concomitant]
     Indication: VITAMIN SUPPLEMENTATION

REACTIONS (1)
  - TREMOR [None]
